FAERS Safety Report 8205781-7 (Version None)
Quarter: 2012Q1

REPORT INFORMATION
  Report Type: 
  Country: None (occurrence: None)
  Receive Date: 20120313
  Receipt Date: 20120306
  Transmission Date: 20120608
  Serious: Yes (Hospitalization)
  Sender: FDA-Public Use
  Company Number: JP-PFIZER INC-2012043791

PATIENT
  Age: 60 Year
  Sex: Female
  Weight: 50.9 kg

DRUGS (1)
  1. SULFASALAZINE [Suspect]
     Indication: CROHN'S DISEASE
     Dosage: 1500 MG, 3X/DAY
     Route: 048
     Dates: start: 20110610, end: 20110619

REACTIONS (2)
  - PYREXIA [None]
  - DRUG ERUPTION [None]
